FAERS Safety Report 5557848-X (Version None)
Quarter: 2007Q4

REPORT INFORMATION
  Report Type: 
  Country: None (occurrence: None)
  Receive Date: 20071214
  Receipt Date: 20071213
  Transmission Date: 20080405
  Serious: Yes (Death)
  Sender: FDA-Public Use
  Company Number: GB-JNJFOC-20071203318

PATIENT
  Age: 61 Year
  Sex: Female
  Weight: 85 kg

DRUGS (3)
  1. RISPERDAL [Suspect]
     Indication: SCHIZOAFFECTIVE DISORDER
     Route: 048
  2. BEZAFIBRATE [Concomitant]
     Indication: MIXED HYPERLIPIDAEMIA
     Route: 048
  3. CYANOCOBALAMIN [Concomitant]
     Route: 048

REACTIONS (1)
  - HAEMORRHAGIC STROKE [None]
